FAERS Safety Report 10983428 (Version 2)
Quarter: 2015Q2

REPORT INFORMATION
  Report Type: Spontaneous
  Country: US (occurrence: US)
  Receive Date: 20150403
  Receipt Date: 20150410
  Transmission Date: 20150821
  Serious: No
  Sender: FDA-Public Use
  Company Number: US-TEVA-550471USA

PATIENT
  Sex: Female

DRUGS (1)
  1. FENTORA [Suspect]
     Active Substance: FENTANYL CITRATE
     Indication: PAIN
     Dosage: DOSE AND FREQUENCY NOT PROVIDED
     Route: 002

REACTIONS (2)
  - Product use issue [Unknown]
  - Bedridden [Unknown]
